FAERS Safety Report 7987585-3 (Version None)
Quarter: 2011Q4

REPORT INFORMATION
  Report Type: 
  Country: None (occurrence: None)
  Receive Date: 20111216
  Receipt Date: 20110819
  Transmission Date: 20120403
  Serious: Yes (Other)
  Sender: FDA-Public Use
  Company Number: US-BRISTOL-MYERS SQUIBB COMPANY-15683220

PATIENT
  Age: 17 Year
  Sex: Male
  Weight: 93 kg

DRUGS (3)
  1. ABILIFY [Suspect]
     Indication: THINKING ABNORMAL
     Dosage: 1 BOTTLE ABILIFY 5MG BID 60 TABLETS 59 TABLETS REMAINING
     Dates: start: 20110111
  2. IMMUNE GLOBULIN NOS [Concomitant]
     Indication: MENTAL DISORDER
     Dosage: 1 DF = FOR 5-6 HRS A DAY
     Route: 042
  3. ABILIFY [Suspect]
     Indication: ASPERGER'S DISORDER
     Dosage: 1 BOTTLE ABILIFY 5MG BID 60 TABLETS 59 TABLETS REMAINING
     Dates: start: 20110111

REACTIONS (2)
  - SOMNOLENCE [None]
  - DEPRESSION [None]
